FAERS Safety Report 4373774-6 (Version None)
Quarter: 2004Q2

REPORT INFORMATION
  Report Type: 
  Country: None (occurrence: None)
  Receive Date: 20040607
  Receipt Date: 20040607
  Transmission Date: 20050107
  Serious: Yes (Hospitalization)
  Sender: FDA-Public Use
  Company Number: None

PATIENT
  Sex: Male
  Weight: 79.3795 kg

DRUGS (4)
  1. TAXOTERE [Suspect]
     Indication: OESOPHAGEAL CARCINOMA
     Dosage: 66 MG/IV WKLY
     Route: 042
     Dates: start: 20040513
  2. TAXOTERE [Suspect]
     Indication: OESOPHAGEAL CARCINOMA
     Dosage: 66 MG/IV WKLY
     Route: 042
     Dates: start: 20040520
  3. IRINOTECAN (50 MG/M2) [Suspect]
     Dosage: 95 MG/M2 IV WKLY
     Route: 042
     Dates: start: 20040513
  4. IRINOTECAN (50 MG/M2) [Suspect]
     Dosage: 95 MG/M2 IV WKLY
     Route: 042
     Dates: start: 20040520

REACTIONS (1)
  - UNEVALUABLE EVENT [None]
